FAERS Safety Report 10261516 (Version 2)
Quarter: 2014Q2

REPORT INFORMATION
  Report Type: Spontaneous
  Country: US (occurrence: US)
  Receive Date: 20140626
  Receipt Date: 20140626
  Transmission Date: 20141212
  Serious: No
  Sender: FDA-Public Use
  Company Number: US-MYLANLABS-2013S1025296

PATIENT
  Age: 68 Year
  Sex: Female
  Weight: 42.18 kg

DRUGS (6)
  1. PERFOROMIST (FORMOTEROL FUMARATE) INHALATION SOLUTION [Suspect]
     Indication: OBSTRUCTIVE AIRWAYS DISORDER
     Route: 055
     Dates: start: 201307
  2. VERAPAMIL HYDROCHLORIDE EXTENDED-RELEASE CAPSULES [Suspect]
     Indication: BLOOD PRESSURE INCREASED
     Route: 048
     Dates: start: 20131028, end: 20131106
  3. PREDNISONE [Concomitant]
     Route: 048
  4. SENSIPAR [Concomitant]
     Indication: HYPERPARATHYROIDISM
     Route: 048
  5. VERAPAMIL HYDROCHLORIDE EXTENDED-RELEASE CAPSULES (PM) [Concomitant]
     Indication: BLOOD PRESSURE INCREASED
     Route: 048
     Dates: end: 201310
  6. SYNTHROID [Concomitant]
     Indication: HYPOTHYROIDISM
     Route: 048

REACTIONS (1)
  - Tremor [Not Recovered/Not Resolved]
